FAERS Safety Report 6835848-7 (Version None)
Quarter: 2010Q3

REPORT INFORMATION
  Report Type: 
  Country: None (occurrence: None)
  Receive Date: 20100712
  Receipt Date: 20100712
  Transmission Date: 20110219
  Serious: Yes (Life-Threatening, Hospitalization)
  Sender: FDA-Public Use
  Company Number: None

PATIENT
  Sex: Female
  Weight: 82.5547 kg

DRUGS (2)
  1. REGLAN [Suspect]
     Indication: POST LUMBAR PUNCTURE SYNDROME
     Dosage: ? ONE DOSE IV
     Route: 042
  2. REGLAN [Concomitant]

REACTIONS (18)
  - DYSTONIA [None]
  - GAIT DISTURBANCE [None]
  - GRANULOCYTES ABNORMAL [None]
  - HAEMATOCRIT ABNORMAL [None]
  - HAEMOGLOBIN ABNORMAL [None]
  - HEADACHE [None]
  - HYPERHIDROSIS [None]
  - HYPERSENSITIVITY [None]
  - INCONTINENCE [None]
  - INSOMNIA [None]
  - MUSCLE RIGIDITY [None]
  - MUSCLE TWITCHING [None]
  - MYALGIA [None]
  - NERVOUSNESS [None]
  - RED BLOOD CELL ABNORMALITY [None]
  - RESTLESSNESS [None]
  - UNEVALUABLE EVENT [None]
  - VAGINAL HAEMORRHAGE [None]
